FAERS Safety Report 9564907 (Version 1)
Quarter: 2013Q3

REPORT INFORMATION
  Report Type: Spontaneous
  Country: US (occurrence: US)
  Receive Date: 20130930
  Receipt Date: 20130930
  Transmission Date: 20140515
  Serious: Yes (Other)
  Sender: FDA-Public Use
  Company Number: CHPA2013US014622

PATIENT
  Age: 64 Year
  Sex: Female

DRUGS (1)
  1. BUCKLEY^S COUGH MIXTURE [Suspect]
     Indication: COUGH
     Dosage: 0.5 TSP, UNK
     Route: 048

REACTIONS (5)
  - Asthma [Unknown]
  - Bronchitis [Unknown]
  - Disease recurrence [Unknown]
  - Underdose [Unknown]
  - Therapeutic response unexpected [Unknown]
